FAERS Safety Report 7076635-7 (Version None)
Quarter: 2010Q4

REPORT INFORMATION
  Report Type: 
  Country: None (occurrence: None)
  Receive Date: 20101101
  Receipt Date: 20101028
  Transmission Date: 20110411
  Serious: No
  Sender: FDA-Public Use
  Company Number: US-PFIZER INC-2010137728

PATIENT
  Sex: Male
  Weight: 58.957 kg

DRUGS (2)
  1. ZOLOFT [Suspect]
     Indication: POST-TRAUMATIC STRESS DISORDER
     Dosage: 100 MG, 1X/DAY
     Route: 048
     Dates: start: 19990101
  2. RISPERIDONE [Interacting]
     Indication: BIPOLAR DISORDER
     Dosage: 3 MG, 1X/DAY
     Route: 048
     Dates: start: 19990101

REACTIONS (2)
  - DRUG INTERACTION [None]
  - METABOLIC DISORDER [None]
